FAERS Safety Report 6375809-8 (Version None)
Quarter: 2009Q3

REPORT INFORMATION
  Report Type: 
  Country: None (occurrence: None)
  Receive Date: 20090924
  Receipt Date: 20090916
  Transmission Date: 20100115
  Serious: Yes (Hospitalization)
  Sender: FDA-Public Use
  Company Number: FR-SANOFI-SYNTHELABO-A02200902403

PATIENT
  Age: 49 Year
  Sex: Male

DRUGS (1)
  1. KERLONE [Suspect]
     Indication: HYPERTENSION
     Dosage: UNK
     Route: 048
     Dates: start: 19990101, end: 20090819

REACTIONS (2)
  - HEPATOCELLULAR INJURY [None]
  - JAUNDICE [None]
